FAERS Safety Report 21819101 (Version 3)
Quarter: 2023Q1

REPORT INFORMATION
  Report Type: Spontaneous
  Country: ID (occurrence: ID)
  Receive Date: 20230104
  Receipt Date: 20230111
  Transmission Date: 20230417
  Serious: Yes (Other)
  Sender: FDA-Public Use
  Company Number: ID-PFIZER INC-202300002123

PATIENT
  Age: 59 Year
  Sex: Male

DRUGS (9)
  1. LINEZOLID [Suspect]
     Active Substance: LINEZOLID
     Indication: Tuberculosis
     Dosage: 600 MG, 1X/DAY
     Dates: start: 201807, end: 201812
  2. LINEZOLID [Suspect]
     Active Substance: LINEZOLID
     Dosage: 300 MG, 1X/DAY
     Dates: start: 201812, end: 201908
  3. LEVOFLOXACIN [Concomitant]
     Active Substance: LEVOFLOXACIN
     Indication: Tuberculosis
     Dosage: 875 MG, 1X/DAY
     Dates: start: 201807
  4. CYCLOSERINE [Concomitant]
     Active Substance: CYCLOSERINE
     Indication: Tuberculosis
     Dosage: 875 MG, 1X/DAY
     Dates: start: 201807, end: 201901
  5. CYCLOSERINE [Concomitant]
     Active Substance: CYCLOSERINE
     Dosage: 500 MG, 1X/DAY
     Dates: start: 201901
  6. BEDAQUILINE [Concomitant]
     Active Substance: BEDAQUILINE
     Indication: Tuberculosis
     Dosage: 400 MG, 1X/DAY
     Dates: start: 201807
  7. BEDAQUILINE [Concomitant]
     Active Substance: BEDAQUILINE
     Dosage: 200 MG, 1X/DAY
  8. ISONIAZID [Concomitant]
     Active Substance: ISONIAZID
     Indication: Tuberculosis
     Dosage: 600 MG, 1X/DAY
     Dates: start: 201807
  9. PYRIDOXINE [Concomitant]
     Active Substance: PYRIDOXINE
     Indication: Tuberculosis
     Dosage: 200 MG, 1X/DAY
     Dates: start: 201807

REACTIONS (6)
  - Thrombocytopenia [Recovering/Resolving]
  - Myelosuppression [Unknown]
  - Pancytopenia [Recovered/Resolved]
  - Optic neuritis [Unknown]
  - Retinitis [Unknown]
  - Off label use [Unknown]

NARRATIVE: CASE EVENT DATE: 20180701
